FAERS Safety Report 17599895 (Version 1)
Quarter: 2020Q1

REPORT INFORMATION
  Report Type: Spontaneous
  Country: CA (occurrence: CA)
  Receive Date: 20200330
  Receipt Date: 20200330
  Transmission Date: 20200409
  Serious: Yes (Other)
  Sender: FDA-Public Use
  Company Number: CA-PFIZER INC-2020129458

PATIENT
  Sex: Female

DRUGS (8)
  1. ARAVA [Suspect]
     Active Substance: LEFLUNOMIDE
  2. COSENTYX [Suspect]
     Active Substance: SECUKINUMAB
  3. CIMZIA [Suspect]
     Active Substance: CERTOLIZUMAB PEGOL
  4. REMICADE [Suspect]
     Active Substance: INFLIXIMAB
  5. STELARA [Suspect]
     Active Substance: USTEKINUMAB
  6. SIMPONI [Suspect]
     Active Substance: GOLIMUMAB
  7. SULFASALAZINE. [Suspect]
     Active Substance: SULFASALAZINE
  8. HUMIRA [Suspect]
     Active Substance: ADALIMUMAB

REACTIONS (4)
  - Treatment failure [Unknown]
  - Drug ineffective [Unknown]
  - Thrombocytopenia [Unknown]
  - Fatigue [Unknown]
